FAERS Safety Report 7944821-7 (Version None)
Quarter: 2011Q4

REPORT INFORMATION
  Report Type: 
  Country: None (occurrence: None)
  Receive Date: 20111129
  Receipt Date: 20111124
  Transmission Date: 20120403
  Serious: Yes (Death)
  Sender: FDA-Public Use
  Company Number: AU-BRISTOL-MYERS SQUIBB COMPANY-16240160

PATIENT

DRUGS (1)
  1. IPILIMUMAB [Suspect]
     Dosage: ONE INFUSION IN SEPTEMBER 2011
     Dates: start: 20110101

REACTIONS (2)
  - NEOPLASM MALIGNANT [None]
  - NEOPLASM PROGRESSION [None]
